FAERS Safety Report 23530995 (Version 1)
Quarter: 2024Q1

REPORT INFORMATION
  Report Type: Spontaneous
  Country: FR (occurrence: FR)
  Receive Date: 20240216
  Receipt Date: 20240216
  Transmission Date: 20240409
  Serious: Yes (Hospitalization, Other)
  Sender: FDA-Public Use
  Company Number: None

PATIENT
  Age: 34 Year
  Sex: Male

DRUGS (6)
  1. NULOJIX [Suspect]
     Active Substance: BELATACEPT
     Indication: Prophylaxis against transplant rejection
     Route: 042
     Dates: start: 20200930, end: 20230920
  2. AZATHIOPRINE [Concomitant]
     Active Substance: AZATHIOPRINE
     Indication: Prophylaxis against transplant rejection
     Route: 048
     Dates: start: 2018
  3. ATORVASTATIN [Concomitant]
     Active Substance: ATORVASTATIN
     Indication: Dyslipidaemia
     Route: 048
  4. PANTOPRAZOLE [Concomitant]
     Active Substance: PANTOPRAZOLE
     Indication: Product used for unknown indication
     Route: 048
  5. RAMIPRIL [Concomitant]
     Active Substance: RAMIPRIL
     Indication: Hypertension
     Route: 048
     Dates: end: 20230919
  6. PREDNISONE [Concomitant]
     Active Substance: PREDNISONE
     Indication: Prophylaxis against transplant rejection
     Route: 048
     Dates: start: 2018

REACTIONS (3)
  - Vomiting [Recovered/Resolved]
  - Abdominal pain [Recovered/Resolved]
  - Nephrotic syndrome [Recovered/Resolved]

NARRATIVE: CASE EVENT DATE: 20230701
